FAERS Safety Report 9412011 (Version 1)
Quarter: 2013Q3

REPORT INFORMATION
  Report Type: Spontaneous
  Country: US (occurrence: US)
  Receive Date: 20130722
  Receipt Date: 20130722
  Transmission Date: 20140515
  Serious: Yes (Hospitalization)
  Sender: FDA-Public Use
  Company Number: US-JNJFOC-20130708592

PATIENT
  Age: 55 Year
  Sex: Male

DRUGS (9)
  1. XARELTO [Suspect]
     Indication: THROMBOSIS PROPHYLAXIS
     Route: 048
     Dates: start: 201204
  2. TYLENOL [Concomitant]
     Dosage: AS NEEDED
     Route: 065
  3. ASPIRIN [Concomitant]
     Route: 065
  4. ATENOLOL [Concomitant]
     Route: 065
  5. CELEBREX [Concomitant]
     Route: 065
  6. VITAMIN D [Concomitant]
     Route: 065
  7. HYDROCHLOROTHIAZIDE [Concomitant]
     Route: 065
  8. INSULIN [Concomitant]
     Route: 065
  9. LOSARTAN [Concomitant]
     Route: 065

REACTIONS (1)
  - Pulmonary embolism [Unknown]
